FAERS Safety Report 16660574 (Version 1)
Quarter: 2019Q3

REPORT INFORMATION
  Report Type: Spontaneous
  Country: ES (occurrence: ES)
  Receive Date: 20190802
  Receipt Date: 20190802
  Transmission Date: 20191004
  Serious: Yes (Life-Threatening, Hospitalization)
  Sender: FDA-Public Use
  Company Number: ES-TEVA-2019-ES-1086833

PATIENT
  Age: 57 Year
  Sex: Male

DRUGS (2)
  1. ULUNAR BREEZHALER 85 MICROGRAMOS / 43 MICROGRAMOS POLVO PARA INHALACIO [Concomitant]
     Indication: CHRONIC OBSTRUCTIVE PULMONARY DISEASE
     Dosage: 1 CAPSULE / 24 HOURS
     Route: 055
     Dates: start: 20190521
  2. IBUPROFENO (1769A) [Suspect]
     Active Substance: IBUPROFEN
     Indication: TOOTH EXTRACTION
     Dosage: A DOSE
     Route: 048
     Dates: start: 20190612, end: 20190612

REACTIONS (1)
  - Anaphylactic shock [Recovered/Resolved]

NARRATIVE: CASE EVENT DATE: 20190612
